FAERS Safety Report 6386459-1 (Version None)
Quarter: 2009Q4

REPORT INFORMATION
  Report Type: 
  Country: None (occurrence: None)
  Receive Date: 20091002
  Receipt Date: 20090526
  Transmission Date: 20100525
  Serious: No
  Sender: FDA-Public Use
  Company Number: US-ASTRAZENECA-2009UW13358

PATIENT
  Sex: Female

DRUGS (6)
  1. ARIMIDEX [Suspect]
     Indication: NEOPLASM MALIGNANT
     Route: 048
     Dates: start: 20060101
  2. ACTONEL [Concomitant]
  3. IOPIDINE [Concomitant]
  4. SIMVASTATIN [Concomitant]
  5. OXBUTIN [Concomitant]
  6. CARDOPAMINE [Concomitant]

REACTIONS (1)
  - PARKINSON'S DISEASE [None]
